FAERS Safety Report 11927676 (Version 2)
Quarter: 2016Q1

REPORT INFORMATION
  Report Type: Spontaneous
  Country: US (occurrence: US)
  Receive Date: 20160119
  Receipt Date: 20160219
  Transmission Date: 20160526
  Serious: No
  Sender: FDA-Public Use
  Company Number: US-PFIZER INC-2015477085

PATIENT
  Age: 60 Year
  Sex: Female

DRUGS (1)
  1. GABAPENTIN. [Suspect]
     Active Substance: GABAPENTIN
     Indication: FIBROMYALGIA
     Dosage: 300 MG, 3X/DAY
     Dates: start: 201510

REACTIONS (5)
  - Drug ineffective for unapproved indication [Recovered/Resolved]
  - Pollakiuria [Unknown]
  - Renal disorder [Unknown]
  - Somnolence [Recovered/Resolved]
  - Dysuria [Unknown]
